FAERS Safety Report 17788471 (Version 1)
Quarter: 2020Q2

REPORT INFORMATION
  Report Type: Report from Study
  Country: NL (occurrence: SD)
  Receive Date: 20200515
  Receipt Date: 20200515
  Transmission Date: 20200714
  Serious: Yes (Other)
  Sender: FDA-Public Use
  Company Number: NL-SUN PHARMACEUTICAL INDUSTRIES LTD-2020R1-246359

PATIENT
  Sex: Female

DRUGS (2)
  1. SODIUMSTIBOGLUCONATE [Suspect]
     Active Substance: SODIUM STIBOGLUCONATE ANHYDROUS
     Indication: VISCERAL LEISHMANIASIS
     Dosage: UNK
     Route: 065
  2. PAROMOMYCIN [Suspect]
     Active Substance: PAROMOMYCIN
     Indication: VISCERAL LEISHMANIASIS
     Dosage: UNK
     Route: 065

REACTIONS (3)
  - Exposure during pregnancy [Unknown]
  - Wrong product administered [Unknown]
  - Premature delivery [Unknown]
